FAERS Safety Report 21622454 (Version 1)
Quarter: 2022Q4

REPORT INFORMATION
  Report Type: Spontaneous
  Country: US (occurrence: None)
  Receive Date: 20221120
  Receipt Date: 20221120
  Transmission Date: 20230113
  Serious: No
  Sender: FDA-Public Use
  Company Number: None

PATIENT
  Age: 70 Year
  Sex: Male
  Weight: 76.5 kg

DRUGS (1)
  1. LUNESTA [Suspect]
     Active Substance: ESZOPICLONE
     Indication: Insomnia
     Dosage: OTHER QUANTITY : 2 TABLET(S);?FREQUENCY : AT BEDTIME;?
     Route: 048
     Dates: start: 20221110

REACTIONS (4)
  - Belligerence [None]
  - Amnesia [None]
  - Speech disorder [None]
  - Intentional overdose [None]

NARRATIVE: CASE EVENT DATE: 20221119
